FAERS Safety Report 5131949-2 (Version None)
Quarter: 2006Q4

REPORT INFORMATION
  Report Type: 
  Country: None (occurrence: None)
  Receive Date: 20061017
  Receipt Date: 20061004
  Transmission Date: 20070319
  Serious: Yes (Hospitalization)
  Sender: FDA-Public Use
  Company Number: 2005173047

PATIENT
  Age: 59 Year
  Sex: Male
  Weight: 76.2043 kg

DRUGS (1)
  1. BEXTRA [Suspect]
     Indication: BACK PAIN
     Dosage: 20 MG (20 MG, 1 IN 1 D)
     Dates: start: 20040225

REACTIONS (4)
  - ANGIOPLASTY [None]
  - ARTERIOSCLEROSIS [None]
  - CHEST PAIN [None]
  - STENT PLACEMENT [None]
